FAERS Safety Report 7478418-2 (Version None)
Quarter: 2011Q2

REPORT INFORMATION
  Report Type: 
  Country: None (occurrence: None)
  Receive Date: 20110513
  Receipt Date: 20100707
  Transmission Date: 20111010
  Serious: No
  Sender: FDA-Public Use
  Company Number: US-PFIZER INC-2010085509

PATIENT
  Sex: Male

DRUGS (3)
  1. MORPHINE [Concomitant]
     Dosage: UNK
  2. CELEBREX [Suspect]
     Indication: ARTHRITIS
     Dosage: UNK
  3. NAPROSYN [Suspect]
     Dosage: UNK

REACTIONS (2)
  - PAIN [None]
  - MALAISE [None]
